FAERS Safety Report 5085838-2 (Version None)
Quarter: 2006Q3

REPORT INFORMATION
  Report Type: 
  Country: None (occurrence: None)
  Receive Date: 20060817
  Receipt Date: 20060802
  Transmission Date: 20061208
  Serious: Yes (Other)
  Sender: FDA-Public Use
  Company Number: US-2006-018477

PATIENT
  Age: 36 Year
  Sex: Male
  Weight: 51.7 kg

DRUGS (8)
  1. BETASERON [Suspect]
     Indication: RELAPSING-REMITTING MULTIPLE SCLEROSIS
     Dosage: 8 MIU, EVERY 2D, SUBCUTANEOUS
     Route: 058
     Dates: start: 20060526
  2. CIALIS [Concomitant]
  3. ANITDEPRESSANTS [Concomitant]
  4. CORTICOSTEROIDS [Concomitant]
  5. ALEVE [Concomitant]
  6. LEXAPRO [Concomitant]
  7. ATIVAN [Concomitant]
  8. PREDNISONE TAB [Concomitant]

REACTIONS (10)
  - AMNESIA [None]
  - CONFUSIONAL STATE [None]
  - FACE INJURY [None]
  - FALL [None]
  - HEAD INJURY [None]
  - LOSS OF CONSCIOUSNESS [None]
  - PAIN IN EXTREMITY [None]
  - SCRATCH [None]
  - SKIN LACERATION [None]
  - STRESS [None]
